FAERS Safety Report 4446920-3 (Version None)
Quarter: 2004Q3

REPORT INFORMATION
  Report Type: 
  Country: None (occurrence: None)
  Receive Date: 20040908
  Receipt Date: 20040823
  Transmission Date: 20050211
  Serious: Yes (Life-Threatening)
  Sender: FDA-Public Use
  Company Number: S03-FRA-05359-01

PATIENT
  Age: 71 Year
  Sex: Female

DRUGS (7)
  1. MEMANTINE HCL [Suspect]
     Indication: DEMENTIA ALZHEIMER'S TYPE
     Dosage: 10 MG QD PO
     Route: 048
     Dates: end: 20031022
  2. MEMANTINE HCL [Suspect]
     Indication: DEMENTIA ALZHEIMER'S TYPE
     Dosage: 5 MG QD PO
     Route: 048
     Dates: start: 20030829
  3. GEMFIBROZIL [Concomitant]
  4. EQUANIL [Concomitant]
  5. ARICEPT [Concomitant]
  6. DEPAKOTE [Concomitant]
  7. AMLOR (AMLODIPINE BESILATE) [Concomitant]

REACTIONS (4)
  - ASTHENIA [None]
  - MALAISE [None]
  - PALLOR [None]
  - SINUS BRADYCARDIA [None]
